FAERS Safety Report 4663003-8 (Version None)
Quarter: 2005Q2

REPORT INFORMATION
  Report Type: 
  Country: None (occurrence: None)
  Receive Date: 20050516
  Receipt Date: 20050117
  Transmission Date: 20051028
  Serious: Yes (Death, Hospitalization, Other)
  Sender: FDA-Public Use
  Company Number: US-MERCK-0501USA02845

PATIENT
  Age: 57 Year
  Sex: Female
  Weight: 109 kg

DRUGS (12)
  1. CITRACAL [Concomitant]
     Route: 048
     Dates: start: 20000919
  2. SKELAXIN [Concomitant]
     Indication: MUSCLE SPASMS
     Route: 065
     Dates: start: 20001228
  3. SKELAXIN [Concomitant]
     Route: 048
     Dates: start: 20010206
  4. VIOXX [Suspect]
     Indication: OSTEOARTHRITIS
     Route: 048
     Dates: start: 20000701, end: 20010601
  5. VIOXX [Suspect]
     Route: 048
     Dates: start: 20000701, end: 20010601
  6. VIOXX [Suspect]
     Route: 048
     Dates: start: 20010619
  7. VIOXX [Suspect]
     Indication: MYOSITIS
     Route: 048
     Dates: start: 20000701, end: 20010601
  8. LORCET-HD [Concomitant]
     Indication: RADICULITIS
     Route: 065
     Dates: start: 20010601
  9. VIOXX [Suspect]
     Route: 048
     Dates: start: 20000701, end: 20010601
  10. VIOXX [Suspect]
     Route: 048
     Dates: start: 20010619
  11. LEVOXYL [Concomitant]
     Indication: HYPOTHYROIDISM
     Route: 065
  12. ZYDONE [Concomitant]
     Indication: ARTHRALGIA
     Route: 065
     Dates: start: 20000711

REACTIONS (16)
  - ATHEROSCLEROSIS [None]
  - BODY TEMPERATURE INCREASED [None]
  - CARDIAC FAILURE [None]
  - CARDIAC FAILURE CONGESTIVE [None]
  - CARDIOGENIC SHOCK [None]
  - COAGULOPATHY [None]
  - COMA [None]
  - HYPERTENSION [None]
  - INTRACARDIAC THROMBUS [None]
  - MULTI-ORGAN FAILURE [None]
  - MYOCARDIAL INFARCTION [None]
  - SEPSIS [None]
  - TOOTH EXTRACTION [None]
  - VENTRICULAR DYSFUNCTION [None]
  - VENTRICULAR TACHYCARDIA [None]
  - WRIST FRACTURE [None]
